FAERS Safety Report 16809860 (Version 2)
Quarter: 2020Q2

REPORT INFORMATION
  Report Type: Report from Study
  Country: US (occurrence: US)
  Receive Date: 20190916
  Receipt Date: 20200423
  Transmission Date: 20200713
  Serious: No
  Sender: FDA-Public Use
  Company Number: US-AMGEN-USASP2019148626

PATIENT
  Sex: Female

DRUGS (2)
  1. PROLIA [Suspect]
     Active Substance: DENOSUMAB
     Indication: OSTEOPOROSIS POSTMENOPAUSAL
     Dosage: 60 MILLIGRAM, Q2WK
     Route: 065
     Dates: start: 2015
  2. MELOXICAM. [Concomitant]
     Active Substance: MELOXICAM
     Indication: SPINAL PAIN

REACTIONS (3)
  - Contusion [Unknown]
  - Fall [Unknown]
  - Eczema [Not Recovered/Not Resolved]
